FAERS Safety Report 9731577 (Version 1)
Quarter: 2013Q4

REPORT INFORMATION
  Report Type: Spontaneous
  Country: FR (occurrence: None)
  Receive Date: 20131203
  Receipt Date: 20131203
  Transmission Date: 20140711
  Serious: Yes (Disabling)
  Sender: FDA-Public Use
  Company Number: FR-RRD-13-00045

PATIENT
  Age: 39 Year
  Sex: Female

DRUGS (4)
  1. TRANXENE [Suspect]
     Indication: PRODUCT USED FOR UNKNOWN INDICATION
     Dosage: 40 MG (20 MG, 2 IN 1 D)
     Route: 048
  2. SOLIAN [Suspect]
     Indication: PSYCHOTIC DISORDER
     Dosage: 800 MG (400 MG, 2 IN 1 D)
     Route: 048
     Dates: start: 201307, end: 201307
  3. TERCIAN [Suspect]
     Indication: PSYCHOTIC DISORDER
     Dosage: 50 MG IN MORNING, 25 MG MIDDAY, AND 50 MG IN EVENING (ALREADY RECEIVED UP TO 300 MG DAILY)
     Route: 048
     Dates: start: 201307, end: 201306
  4. PAROXETINE (PAROXETINE) (PAROXETINE) [Suspect]
     Indication: ANXIETY DISORDER
     Route: 048

REACTIONS (7)
  - Type V hyperlipidaemia [None]
  - Gastrointestinal disorder [None]
  - Chest pain [None]
  - Urine odour abnormal [None]
  - Hypotension [None]
  - Weight increased [None]
  - Oedema peripheral [None]
